FAERS Safety Report 17820289 (Version 1)
Quarter: 2020Q2

REPORT INFORMATION
  Report Type: Spontaneous
  Country: HK (occurrence: HK)
  Receive Date: 20200525
  Receipt Date: 20200525
  Transmission Date: 20200714
  Serious: Yes (Other)
  Sender: FDA-Public Use
  Company Number: HK-TEVA-2020-HK-1239415

PATIENT
  Age: 91 Year
  Sex: Male

DRUGS (2)
  1. MEGESTROL [Suspect]
     Active Substance: MEGESTROL
     Indication: DECREASED APPETITE
     Dosage: 80 MILLIGRAM DAILY;
     Route: 048
  2. GLICLAZIDE [Concomitant]
     Active Substance: GLICLAZIDE
     Indication: TYPE 2 DIABETES MELLITUS
     Route: 065

REACTIONS (3)
  - Weight increased [Unknown]
  - Hyperphagia [Recovered/Resolved]
  - Off label use [Unknown]
